FAERS Safety Report 16411257 (Version 2)
Quarter: 2020Q1

REPORT INFORMATION
  Report Type: Spontaneous
  Country: CA (occurrence: CA)
  Receive Date: 20190610
  Receipt Date: 20200311
  Transmission Date: 20200409
  Serious: Yes (Other)
  Sender: FDA-Public Use
  Company Number: CA-BAUSCH-BL-2019-016694

PATIENT
  Age: 37 Year
  Sex: Male

DRUGS (3)
  1. CIPROFLOXACIN HYDROCHLORIDE. [Suspect]
     Active Substance: CIPROFLOXACIN HYDROCHLORIDE
     Indication: ANORECTAL DISCOMFORT
     Route: 065
     Dates: start: 201705, end: 201705
  2. METRONIDAZOLE. [Suspect]
     Active Substance: METRONIDAZOLE
     Indication: ANORECTAL DISCOMFORT
     Route: 065
     Dates: start: 201705, end: 201705
  3. AMOXI-CLAV [Concomitant]
     Active Substance: AMOXICILLIN\CLAVULANATE POTASSIUM
     Indication: ANORECTAL DISCOMFORT
     Dates: start: 201705, end: 2017

REACTIONS (6)
  - Anal abscess [Unknown]
  - Anal inflammation [Unknown]
  - Rectal haemorrhage [Unknown]
  - Drug ineffective [Unknown]
  - Aphthous ulcer [Unknown]
  - Condition aggravated [Unknown]
